FAERS Safety Report 4367472-2 (Version None)
Quarter: 2004Q2

REPORT INFORMATION
  Report Type: 
  Country: None (occurrence: None)
  Receive Date: 20040520
  Receipt Date: 20040503
  Transmission Date: 20050107
  Serious: Yes (Hospitalization, Disabling)
  Sender: FDA-Public Use
  Company Number: 601209

PATIENT
  Age: 64 Year
  Sex: Male
  Weight: 105.6881 kg

DRUGS (3)
  1. POLYGAM S/D [Suspect]
     Indication: NEUROPATHY
     Dosage: 100 GM; QM; INTRAVENOUS
     Route: 042
     Dates: start: 20020522, end: 20020522
  2. ZOCOR [Concomitant]
  3. NADOLOL [Concomitant]

REACTIONS (7)
  - APHASIA [None]
  - CEREBRAL ARTERY EMBOLISM [None]
  - CEREBRAL INFARCTION [None]
  - CEREBROVASCULAR ACCIDENT [None]
  - HEADACHE [None]
  - INFUSION RELATED REACTION [None]
  - PHOTOPSIA [None]
